FAERS Safety Report 8523906-0 (Version None)
Quarter: 2012Q3

REPORT INFORMATION
  Report Type: 
  Country: None (occurrence: None)
  Receive Date: 20120720
  Receipt Date: 20120717
  Transmission Date: 20120928
  Serious: Yes (Other)
  Sender: FDA-Public Use
  Company Number: US-PFIZER INC-2012162735

PATIENT
  Sex: Female
  Weight: 56.689 kg

DRUGS (1)
  1. RELPAX [Suspect]
     Indication: MIGRAINE
     Dosage: 40 MG, DAILY
     Dates: start: 20120510, end: 20120511

REACTIONS (2)
  - ORAL DISORDER [None]
  - OEDEMA MOUTH [None]
